FAERS Safety Report 16309578 (Version 1)
Quarter: 2019Q2

REPORT INFORMATION
  Report Type: Report from Study
  Country: ES (occurrence: ES)
  Receive Date: 20190514
  Receipt Date: 20190514
  Transmission Date: 20190711
  Serious: Yes (Disabling)
  Sender: FDA-Public Use
  Company Number: ES-MYLANLABS-2019M1044218

PATIENT
  Age: 50 Year
  Sex: Female

DRUGS (6)
  1. IRINOTECAN [Suspect]
     Active Substance: IRINOTECAN
     Indication: BREAST CANCER FEMALE
     Dosage: SP
     Dates: start: 20090201, end: 20090501
  2. ADRIAMYCIN [Suspect]
     Active Substance: DOXORUBICIN HYDROCHLORIDE
     Indication: BREAST CANCER FEMALE
     Dosage: 60 MILLIGRAM/SQ. METER, CYCLE (60MG/M2 X 21 DIAS X 4 CICLOS)
     Route: 042
     Dates: start: 20030902, end: 20031202
  3. TAMOXIFEN [Suspect]
     Active Substance: TAMOXIFEN
     Indication: BREAST CANCER FEMALE
     Dosage: UNK
     Dates: start: 20040112, end: 20081231
  4. GEMCITABINA /01215701/ [Suspect]
     Active Substance: GEMCITABINE HYDROCHLORIDE
     Indication: BREAST CANCER FEMALE
     Dosage: SP
     Dates: start: 20090201, end: 20090501
  5. DOCETAXEL. [Suspect]
     Active Substance: DOCETAXEL
     Indication: BREAST CANCER FEMALE
     Dosage: SP
     Route: 042
     Dates: start: 20090201, end: 20090501
  6. CICLOFOSFAMIDA [Suspect]
     Active Substance: CYCLOPHOSPHAMIDE
     Indication: BREAST CANCER FEMALE
     Dosage: 600 MILLIGRAM/SQ. METER, CYCLE (600MG/M2 X 21 DIAS X 4 CICLOS)
     Route: 042
     Dates: start: 20030902, end: 20031202

REACTIONS (1)
  - Left ventricular dysfunction [Recovered/Resolved with Sequelae]

NARRATIVE: CASE EVENT DATE: 201605
